FAERS Safety Report 4809327-2 (Version None)
Quarter: 2005Q4

REPORT INFORMATION
  Report Type: 
  Country: None (occurrence: None)
  Receive Date: 20051021
  Receipt Date: 20040618
  Transmission Date: 20060501
  Serious: No
  Sender: FDA-Public Use
  Company Number: USA040670549

PATIENT
  Age: 24 Year
  Sex: Male

DRUGS (4)
  1. ZYPREXA [Suspect]
     Indication: SUICIDAL IDEATION
     Dosage: 2.5 MG/1 DAY
     Dates: start: 20030903
  2. ATACAND [Concomitant]
  3. BUPROPION HCL [Concomitant]
  4. ALBUTEROL [Concomitant]

REACTIONS (14)
  - ABDOMINAL PAIN [None]
  - BLOOD GLUCOSE INCREASED [None]
  - DIARRHOEA [None]
  - DIZZINESS [None]
  - FATIGUE [None]
  - FULL BLOOD COUNT ABNORMAL [None]
  - HEPATIC STEATOSIS [None]
  - HYPERTENSION [None]
  - MALAISE [None]
  - PAIN [None]
  - POLYDIPSIA [None]
  - SOMNOLENCE [None]
  - WEIGHT DECREASED [None]
  - WEIGHT INCREASED [None]
